FAERS Safety Report 8929142 (Version 2)
Quarter: 2013Q1

REPORT INFORMATION
  Report Type: Spontaneous
  Country: DE (occurrence: DE)
  Receive Date: 20121127
  Receipt Date: 20130312
  Transmission Date: 20140127
  Serious: Yes (Hospitalization)
  Sender: FDA-Public Use
  Company Number: PHHY2012DE107675

PATIENT
  Age: 34 Year
  Sex: Male

DRUGS (10)
  1. GILENYA [Suspect]
     Indication: MULTIPLE SCLEROSIS
     Dosage: 0.5 MG, QD
     Route: 048
     Dates: start: 20120829, end: 20120904
  2. GILENYA [Suspect]
     Dosage: 5 MG, QD
     Route: 048
     Dates: start: 20120909, end: 20120910
  3. METOPROLOL [Concomitant]
     Dosage: 47.5 MG, QD
  4. ASA [Concomitant]
     Dosage: 100 MG, QD
  5. PLAVIX [Concomitant]
     Dosage: 75 MG, QD
  6. PLAVIX [Concomitant]
     Dosage: 600 MG, UNK
     Route: 048
  7. RAMIPRIL [Concomitant]
     Dosage: 5 MG, QD
  8. SIMVASTATIN [Concomitant]
     Dosage: 20 MG, QD
  9. PANTOZOL [Concomitant]
     Dosage: 40 MG, QD
  10. SORTIS [Concomitant]
     Dosage: 40 MG, UNK
     Route: 048

REACTIONS (8)
  - Coronary artery thrombosis [Unknown]
  - Coronary artery dissection [Unknown]
  - Blood creatine phosphokinase increased [Unknown]
  - Acute myocardial infarction [Recovered/Resolved with Sequelae]
  - Angina pectoris [Recovered/Resolved with Sequelae]
  - Chest pain [Unknown]
  - Troponin increased [Unknown]
  - Electrocardiogram ST segment depression [Unknown]
